FAERS Safety Report 6156243-2 (Version None)
Quarter: 2009Q2

REPORT INFORMATION
  Report Type: 
  Country: None (occurrence: None)
  Receive Date: 20090415
  Receipt Date: 20090408
  Transmission Date: 20091009
  Serious: Yes (Other)
  Sender: FDA-Public Use
  Company Number: US-BAYER-200911110BCC

PATIENT
  Age: 74 Year
  Sex: Female
  Weight: 56 kg

DRUGS (4)
  1. ALEVE (CAPLET) [Suspect]
     Indication: SPONDYLITIS
     Dosage: UNIT DOSE: 440 MG
     Route: 048
     Dates: start: 20090401
  2. ASPIRIN [Concomitant]
  3. BENICAR HCT [Concomitant]
  4. VITAMIN D [Concomitant]

REACTIONS (1)
  - BLOOD PRESSURE INCREASED [None]
